FAERS Safety Report 6961066-8 (Version None)
Quarter: 2010Q3

REPORT INFORMATION
  Report Type: 
  Country: None (occurrence: None)
  Receive Date: 20100830
  Receipt Date: 20100820
  Transmission Date: 20110219
  Serious: Yes (Other)
  Sender: FDA-Public Use
  Company Number: DSA_43787_2010

PATIENT
  Sex: Male

DRUGS (19)
  1. XENAZINE [Suspect]
     Indication: BALLISMUS
     Dosage: 12.5 MG BID ORAL, 12.5 MG BID ORAL, 12.5 MG BID ORAL
     Route: 048
     Dates: start: 20020101, end: 20100101
  2. XENAZINE [Suspect]
     Indication: CHOREA
     Dosage: 12.5 MG BID ORAL, 12.5 MG BID ORAL, 12.5 MG BID ORAL
     Route: 048
     Dates: start: 20020101, end: 20100101
  3. XENAZINE [Suspect]
     Indication: BALLISMUS
     Dosage: 12.5 MG BID ORAL, 12.5 MG BID ORAL, 12.5 MG BID ORAL
     Route: 048
     Dates: start: 20100101, end: 20100101
  4. XENAZINE [Suspect]
     Indication: CHOREA
     Dosage: 12.5 MG BID ORAL, 12.5 MG BID ORAL, 12.5 MG BID ORAL
     Route: 048
     Dates: start: 20100101, end: 20100101
  5. XENAZINE [Suspect]
     Indication: BALLISMUS
     Dosage: 12.5 MG BID ORAL, 12.5 MG BID ORAL, 12.5 MG BID ORAL
     Route: 048
     Dates: start: 20100101
  6. XENAZINE [Suspect]
     Indication: CHOREA
     Dosage: 12.5 MG BID ORAL, 12.5 MG BID ORAL, 12.5 MG BID ORAL
     Route: 048
     Dates: start: 20100101
  7. XANAX [Concomitant]
  8. CLONAZEPAM [Concomitant]
  9. LEVOXYL [Concomitant]
  10. VITAMIN D [Concomitant]
  11. XYZAL [Concomitant]
  12. ZYPREXA [Concomitant]
  13. MIRTAZAPINE [Concomitant]
  14. KLOR-CON [Concomitant]
  15. FUROSEMIDE [Concomitant]
  16. SPIRONOLACTONE [Concomitant]
  17. POTASSIUM PHOSPHATES [Concomitant]
  18. ALBUTEROL [Concomitant]
  19. VENTOLIN [Concomitant]

REACTIONS (6)
  - DRUG HYPERSENSITIVITY [None]
  - FALL [None]
  - NERVOUS SYSTEM DISORDER [None]
  - PRODUCT QUALITY ISSUE [None]
  - PRODUCT SUBSTITUTION ISSUE [None]
  - RENAL FAILURE [None]
